FAERS Safety Report 22993937 (Version 2)
Quarter: 2023Q4

REPORT INFORMATION
  Report Type: Report from Study
  Country: US (occurrence: US)
  Receive Date: 20230927
  Receipt Date: 20231013
  Transmission Date: 20240110
  Serious: Yes (Disabling, Other)
  Sender: FDA-Public Use
  Company Number: US-JNJFOC-20230946469

PATIENT
  Sex: Female
  Weight: 33.596 kg

DRUGS (1)
  1. RIVAROXABAN [Suspect]
     Active Substance: RIVAROXABAN
     Indication: Product used for unknown indication
     Route: 048

REACTIONS (22)
  - Atrial fibrillation [Unknown]
  - Protein S deficiency [Unknown]
  - Multiple sclerosis [Unknown]
  - Cerebrovascular accident [Unknown]
  - Renal impairment [Unknown]
  - Disability [Unknown]
  - Femur fracture [Recovering/Resolving]
  - Poisoning [Unknown]
  - Arthropathy [Recovering/Resolving]
  - Pancreatic neoplasm [Unknown]
  - Vein disorder [Unknown]
  - Fibromyalgia [Unknown]
  - Dyslexia [Unknown]
  - Migraine [Unknown]
  - Liver disorder [Unknown]
  - Cholecystectomy [Unknown]
  - Malnutrition [Unknown]
  - Eating disorder [Unknown]
  - Vein discolouration [Unknown]
  - Alopecia [Unknown]
  - Sensory disturbance [Unknown]
  - Fear of death [Unknown]
